FAERS Safety Report 5443228-4 (Version None)
Quarter: 2007Q3

REPORT INFORMATION
  Report Type: 
  Country: None (occurrence: None)
  Receive Date: 20070905
  Receipt Date: 20070829
  Transmission Date: 20080115
  Serious: Yes (Other)
  Sender: FDA-Public Use
  Company Number: US-AVENTIS-200716201US

PATIENT
  Sex: Male
  Weight: 52.27 kg

DRUGS (11)
  1. LANTUS [Suspect]
  2. LANTUS [Suspect]
  3. LANTUS [Suspect]
     Dosage: DOSE: 3 AM; 4  PM
  4. OPTICLIK (INSULIN INJECTION PEN) [Suspect]
  5. OPTICLIK (INSULIN INJECTION PEN) [Suspect]
  6. HUMALOG [Concomitant]
     Dosage: DOSE: UNK
  7. PRAVASTATIN [Concomitant]
     Dosage: DOSE: UNK
  8. SYNTHROID [Concomitant]
     Dosage: DOSE: UNK
  9. ACTONEL [Concomitant]
     Dosage: DOSE: UNK
  10. VITAMINS NOS [Concomitant]
     Dosage: DOSE: UNK
  11. ASPIRIN [Concomitant]
     Dosage: DOSE: UNK

REACTIONS (5)
  - BLOOD GLUCOSE DECREASED [None]
  - BLOOD GLUCOSE INCREASED [None]
  - DRUG EFFECT INCREASED [None]
  - HYPOGLYCAEMIA [None]
  - WEIGHT DECREASED [None]
